FAERS Safety Report 4964459-3 (Version None)
Quarter: 2006Q2

REPORT INFORMATION
  Report Type: 
  Country: None (occurrence: None)
  Receive Date: 20060406
  Receipt Date: 20060331
  Transmission Date: 20061013
  Serious: Yes (Disabling)
  Sender: FDA-Public Use
  Company Number: IT-AVENTIS-200613417GDDC

PATIENT
  Age: 39 Year
  Sex: Male

DRUGS (2)
  1. KETEK [Suspect]
     Indication: PLEURISY
     Route: 048
     Dates: start: 20060210, end: 20060301
  2. CIPROXIN [Concomitant]
     Dosage: DOSE: UNK

REACTIONS (1)
  - HEPATITIS [None]
